FAERS Safety Report 5528637-7 (Version None)
Quarter: 2007Q4

REPORT INFORMATION
  Report Type: 
  Country: None (occurrence: None)
  Receive Date: 20071116
  Receipt Date: 20070529
  Transmission Date: 20080405
  Serious: Yes (Other)
  Sender: FDA-Public Use
  Company Number: 2007029389

PATIENT
  Age: 7 Year
  Sex: Female
  Weight: 45.4 kg

DRUGS (1)
  1. CLEOCIN [Suspect]
     Dosage: 90 CC (30 CC,3 IN 1 D),ORAL
     Route: 048
     Dates: start: 20070131

REACTIONS (3)
  - DYSGEUSIA [None]
  - MALAISE [None]
  - NAUSEA [None]
